FAERS Safety Report 16719683 (Version 2)
Quarter: 2019Q3

REPORT INFORMATION
  Report Type: Spontaneous
  Country: US (occurrence: US)
  Receive Date: 20190820
  Receipt Date: 20190904
  Transmission Date: 20191005
  Serious: Yes (Death, Other)
  Sender: FDA-Public Use
  Company Number: US-MYLANLABS-2019M1076344

PATIENT
  Age: 21 Year
  Sex: Female

DRUGS (2)
  1. FENTANYL MYLAN [Suspect]
     Active Substance: FENTANYL
     Indication: HEADACHE
     Dosage: UNK
     Dates: start: 20140929
  2. OPANA ER [Suspect]
     Active Substance: OXYMORPHONE HYDROCHLORIDE
     Indication: HEADACHE
     Dosage: UNK
     Route: 065
     Dates: start: 201410

REACTIONS (3)
  - Toxicity to various agents [Fatal]
  - Drug dependence [Unknown]
  - Accidental overdose [Fatal]

NARRATIVE: CASE EVENT DATE: 20170812
